FAERS Safety Report 10949451 (Version 3)
Quarter: 2015Q2

REPORT INFORMATION
  Report Type: Report from Study
  Country: JP (occurrence: JP)
  Receive Date: 20150324
  Receipt Date: 20150604
  Transmission Date: 20150821
  Serious: Yes (Death)
  Sender: FDA-Public Use
  Company Number: JP-PFIZER INC-2015099110

PATIENT
  Age: 63 Year
  Sex: Male

DRUGS (11)
  1. HISICEOL [Concomitant]
     Indication: INTRACRANIAL PRESSURE INCREASED
     Dosage: 200 ML, UNK
     Dates: start: 20130313, end: 20130313
  2. FOSPHENYTOIN SODIUM. [Suspect]
     Active Substance: FOSPHENYTOIN SODIUM
     Dosage: 375 MG, UNK (18.75 MG/MIN, 0.9% PHYSIOLOGICAL SALINE)
     Dates: start: 20130314, end: 20130314
  3. HISICEOL [Concomitant]
     Indication: CEREBRAL HAEMORRHAGE
  4. FOSPHENYTOIN SODIUM. [Suspect]
     Active Substance: FOSPHENYTOIN SODIUM
     Indication: CONVULSION PROPHYLAXIS
     Dosage: 750 MG, UNK (37.5 MG/MIN, 0.9% PHYSIOLOGICAL SALINE)
     Dates: start: 20130311, end: 20130311
  5. FOSPHENYTOIN SODIUM. [Suspect]
     Active Substance: FOSPHENYTOIN SODIUM
     Dosage: 375 MG/KG, UNK (18.75 MG/MIN, 0.9% PHYSIOLOGICAL SALINE)
     Dates: start: 20130315, end: 20130315
  6. FOSPHENYTOIN SODIUM. [Suspect]
     Active Substance: FOSPHENYTOIN SODIUM
     Dosage: 375 MG, UNK (18.75 MG/MIN, 0.9% PHYSIOLOGICAL SALINE)
     Dates: start: 20130312, end: 20130312
  7. TEGRETOL [Concomitant]
     Active Substance: CARBAMAZEPINE
     Indication: EPILEPSY
     Dosage: 300 MG, UNK
     Route: 048
     Dates: start: 20130315, end: 20130317
  8. DEPAKENE [Concomitant]
     Active Substance: VALPROIC ACID
     Indication: EPILEPSY
     Dosage: 1800 MG, UNK
     Route: 048
     Dates: start: 20130315, end: 20130317
  9. FOSPHENYTOIN SODIUM. [Suspect]
     Active Substance: FOSPHENYTOIN SODIUM
     Dosage: 375 MG/KG, UNK (18.75 MG/MIN, 0.9% PHYSIOLOGICAL SALINE)
     Dates: start: 20130313, end: 20130313
  10. ZANTAC [Concomitant]
     Active Substance: RANITIDINE HYDROCHLORIDE
     Indication: PROPHYLAXIS
     Dosage: 100 (UNIT UNSPECIFIED)
     Dates: start: 20130311
  11. NICARDIPINE [Concomitant]
     Active Substance: NICARDIPINE
     Dosage: UNK
     Dates: start: 20130311

REACTIONS (1)
  - Cerebral haemorrhage [Fatal]

NARRATIVE: CASE EVENT DATE: 20130317
